FAERS Safety Report 9437615 (Version 2)
Quarter: 2013Q3

REPORT INFORMATION
  Report Type: Spontaneous
  Country: JP (occurrence: JP)
  Receive Date: 20130802
  Receipt Date: 20130812
  Transmission Date: 20140515
  Serious: Yes (Other)
  Sender: FDA-Public Use
  Company Number: JP-PFIZER INC-2013218567

PATIENT
  Age: 70 Year
  Sex: Male

DRUGS (8)
  1. NORVASC OD [Suspect]
     Indication: HYPERTENSION
     Dosage: 5 MG, DAILY
     Route: 048
     Dates: start: 20130308, end: 201307
  2. BLOPRESS [Concomitant]
     Indication: HYPERTENSION
     Dosage: 4 MG/DAY
     Route: 048
     Dates: end: 20130614
  3. OMEPRAL [Concomitant]
     Indication: CARDIAC DISORDER
     Dosage: 20 MG/DAY
  4. ROHYPNOL [Concomitant]
     Dosage: 1 MG/DAY
  5. RHYTHMY [Concomitant]
     Dosage: 2 MG/DAY
  6. RIKKUNSHI-TO [Concomitant]
     Dosage: UNK
     Dates: start: 201305
  7. XARELTO [Concomitant]
     Dosage: UNK
     Dates: start: 20130619
  8. DEPAS [Concomitant]
     Indication: ANXIETY
     Dosage: 0.5 MG, 1X/DAY
     Dates: start: 20130726

REACTIONS (3)
  - Parkinson^s disease [Not Recovered/Not Resolved]
  - Dyspnoea [Not Recovered/Not Resolved]
  - Arrhythmia [Unknown]
